FAERS Safety Report 15535317 (Version 1)
Quarter: 2018Q4

REPORT INFORMATION
  Report Type: Spontaneous
  Country: FR (occurrence: FR)
  Receive Date: 20181022
  Receipt Date: 20181022
  Transmission Date: 20190205
  Serious: Yes (Other)
  Sender: FDA-Public Use
  Company Number: FR-SUN PHARMACEUTICAL INDUSTRIES LTD-2018RR-188076

PATIENT
  Age: 17 Year
  Sex: Male

DRUGS (2)
  1. TRAMADOL. [Suspect]
     Active Substance: TRAMADOL
     Indication: SUICIDE ATTEMPT
     Dosage: IN TOTAL
     Route: 048
     Dates: start: 20180130, end: 20180130
  2. LOPERAMIDE [Suspect]
     Active Substance: LOPERAMIDE
     Indication: SUICIDE ATTEMPT
     Dosage: IN TOTAL
     Route: 048
     Dates: start: 20180130, end: 20180130

REACTIONS (6)
  - Toxicity to various agents [Recovered/Resolved]
  - Blood bilirubin increased [Recovered/Resolved]
  - Bradypnoea [Recovered/Resolved]
  - Oxygen saturation decreased [Recovered/Resolved]
  - Vomiting [Recovered/Resolved]
  - Psychomotor skills impaired [Recovered/Resolved]

NARRATIVE: CASE EVENT DATE: 20180130
